FAERS Safety Report 25533618 (Version 1)
Quarter: 2025Q3

REPORT INFORMATION
  Report Type: Report from Study
  Country: US (occurrence: US)
  Receive Date: 20250709
  Receipt Date: 20250709
  Transmission Date: 20251020
  Serious: Yes (Hospitalization)
  Sender: UCB
  Company Number: US-UCBSA-2025041631

PATIENT
  Age: 66 Year
  Sex: Female

DRUGS (1)
  1. BIMEKIZUMAB [Suspect]
     Active Substance: BIMEKIZUMAB
     Indication: Psoriasis
     Dosage: 320 MILLIGRAM, EV 4 WEEKS
     Route: 058
     Dates: start: 20250513

REACTIONS (4)
  - Cellulitis [Recovered/Resolved]
  - Staphylococcal infection [Recovered/Resolved]
  - Pseudomonas infection [Recovered/Resolved]
  - Opportunistic infection [Recovered/Resolved]

NARRATIVE: CASE EVENT DATE: 20250607
